FAERS Safety Report 4763506-1 (Version None)
Quarter: 2005Q3

REPORT INFORMATION
  Report Type: 
  Country: None (occurrence: None)
  Receive Date: 20050908
  Receipt Date: 20050830
  Transmission Date: 20060218
  Serious: Yes (Other)
  Sender: FDA-Public Use
  Company Number: JP-JNJFOC-20050900638

PATIENT
  Age: 56 Year
  Sex: Male

DRUGS (4)
  1. ITRIZOLE [Suspect]
     Route: 048
  2. ITRIZOLE [Suspect]
     Indication: ONYCHOMYCOSIS
     Route: 048
  3. CANDESARTAN [Concomitant]
     Indication: HYPERTENSION
     Route: 048
  4. ETIZOLAM [Concomitant]
     Indication: ANXIETY
     Route: 048

REACTIONS (2)
  - ABDOMINAL PAIN UPPER [None]
  - BLOOD CREATINE PHOSPHOKINASE INCREASED [None]
